FAERS Safety Report 13583106 (Version 2)
Quarter: 2017Q2

REPORT INFORMATION
  Report Type: Report from Study
  Country: DE (occurrence: DE)
  Receive Date: 20170525
  Receipt Date: 20170626
  Transmission Date: 20170830
  Serious: Yes (Hospitalization, Other)
  Sender: FDA-Public Use
  Company Number: PHHY2017DE075260

PATIENT
  Sex: Male
  Weight: 70 kg

DRUGS (3)
  1. VALSARTAN DURA [Concomitant]
     Active Substance: VALSARTAN
     Indication: HYPERTENSION
     Dosage: 80 MG, QD
     Route: 048
     Dates: start: 20150831
  2. COSENTYX [Suspect]
     Active Substance: SECUKINUMAB
     Indication: PSORIASIS
     Dosage: 300 MG, QMO
     Route: 058
     Dates: start: 20151023
  3. COSENTYX [Suspect]
     Active Substance: SECUKINUMAB
     Dosage: 300 MG, QMO
     Route: 058
     Dates: start: 20170503

REACTIONS (10)
  - Sensory loss [Unknown]
  - Soft tissue disorder [Unknown]
  - Pain [Unknown]
  - Joint dislocation [Recovered/Resolved with Sequelae]
  - Hypoaesthesia [Unknown]
  - Hyperthyroidism [Unknown]
  - Necrosis [Recovered/Resolved with Sequelae]
  - Skin ulcer [Recovered/Resolved with Sequelae]
  - Cellulitis [Recovered/Resolved with Sequelae]
  - Hyperkeratosis [Recovered/Resolved with Sequelae]

NARRATIVE: CASE EVENT DATE: 20170418
